FAERS Safety Report 18961248 (Version 1)
Quarter: 2021Q1

REPORT INFORMATION
  Report Type: Spontaneous
  Country: CH (occurrence: CH)
  Receive Date: 20210302
  Receipt Date: 20210302
  Transmission Date: 20210420
  Serious: Yes (Other)
  Sender: FDA-Public Use
  Company Number: CH-TEVA-2021-CH-1886431

PATIENT
  Sex: Female

DRUGS (1)
  1. ELETRIPTAN?MEPHA [Suspect]
     Active Substance: ELETRIPTAN
     Indication: MIGRAINE
     Dosage: HALF A TABLET OF 40 MG
     Route: 048

REACTIONS (1)
  - Drug eruption [Recovered/Resolved]
